FAERS Safety Report 23982841 (Version 1)
Quarter: 2024Q2

REPORT INFORMATION
  Report Type: Spontaneous
  Country: US (occurrence: None)
  Receive Date: 20240617
  Receipt Date: 20240617
  Transmission Date: 20240717
  Serious: Yes (Hospitalization)
  Sender: FDA-Public Use
  Company Number: None

PATIENT
  Age: 48 Year
  Sex: Female
  Weight: 37.8 kg

DRUGS (6)
  1. METRONIDAZOLE [Suspect]
     Active Substance: METRONIDAZOLE
     Indication: Clostridium difficile infection
     Dosage: OTHER QUANTITY : 30 CAPSULE(S);?FREQUENCY : 3 TIMES A DAY;?
     Route: 048
     Dates: start: 20230809, end: 20230817
  2. VITAMINS [Concomitant]
     Active Substance: VITAMINS
  3. VITAMIN D [Concomitant]
     Active Substance: VITAMIN D NOS
  4. VITAMIN B12 [Concomitant]
     Active Substance: CYANOCOBALAMIN
  5. IRON [Concomitant]
     Active Substance: IRON
  6. PROBIOTICS PILL [Concomitant]

REACTIONS (12)
  - Decreased appetite [None]
  - Insomnia [None]
  - Anxiety [None]
  - Panic attack [None]
  - Decreased activity [None]
  - Impaired driving ability [None]
  - Headache [None]
  - Stress [None]
  - Pain [None]
  - Muscular weakness [None]
  - Nerve injury [None]
  - Loss of personal independence in daily activities [None]

NARRATIVE: CASE EVENT DATE: 20230809
